FAERS Safety Report 4809502-7 (Version None)
Quarter: 2005Q4

REPORT INFORMATION
  Report Type: 
  Country: None (occurrence: None)
  Receive Date: 20051021
  Receipt Date: 20050623
  Transmission Date: 20060501
  Serious: Yes (Other)
  Sender: FDA-Public Use
  Company Number: US_0502112086

PATIENT
  Age: 46 Year
  Sex: Female
  Weight: 66 kg

DRUGS (17)
  1. ZYPREXA [Suspect]
     Dosage: 5 MG/1 AT BEDTIME
     Dates: start: 20000131
  2. SYMBYAX [Concomitant]
  3. REMERON(MIRTAZAPINE ORIFARM) [Concomitant]
  4. INFLUENZA VACCINE [Concomitant]
  5. DICLOFENAC [Concomitant]
  6. VIBRAMYCIN (DOXYCYCLINE MONOHYDRATE) [Concomitant]
  7. DARVON(DEXTROPROPOXYPHENE NAPSILATE) [Concomitant]
  8. FLAGYL [Concomitant]
  9. BELLADONNA ALKALOIDS [Concomitant]
  10. PHENERGAN [Concomitant]
  11. KEFLEX [Concomitant]
  12. APAP W/HYDROCODONE [Concomitant]
  13. ADVIL [Concomitant]
  14. FLEXERIL [Concomitant]
  15. ACTICIN (PERMETHRIN) [Concomitant]
  16. PROVENTIL (SALBUTAMOL SULFATE) [Concomitant]
  17. TESSALON [Concomitant]

REACTIONS (18)
  - ARTHROPOD BITE [None]
  - BACK PAIN [None]
  - BLOOD CHOLESTEROL INCREASED [None]
  - BLOOD PRESSURE INCREASED [None]
  - BODY TINEA [None]
  - BRONCHITIS [None]
  - DEPRESSION [None]
  - DIABETES MELLITUS [None]
  - FOLLICULITIS [None]
  - HERPES ZOSTER [None]
  - HYPOACUSIS [None]
  - INCISIONAL HERNIA [None]
  - LICE INFESTATION [None]
  - LIPIDS INCREASED [None]
  - NASOPHARYNGITIS [None]
  - SINUSITIS [None]
  - SWELLING FACE [None]
  - SYNCOPE [None]
